FAERS Safety Report 5304541-4 (Version None)
Quarter: 2007Q2

REPORT INFORMATION
  Report Type: 
  Country: None (occurrence: None)
  Receive Date: 20070417
  Receipt Date: 20070417
  Transmission Date: 20071010
  Serious: Yes (Hospitalization, Disabling, Other)
  Sender: FDA-Public Use
  Company Number: None

PATIENT
  Sex: Male
  Weight: 117.9352 kg

DRUGS (4)
  1. SEROQUEL [Suspect]
     Indication: BIPOLAR DISORDER
     Dosage: 200 MG 4 TABS A DAY
     Dates: start: 20040101
  2. ABILIFY [Suspect]
     Indication: BIPOLAR DISORDER
     Dosage: 30 MG 1 TAB A DAY
     Dates: start: 20050101
  3. BLOOD PRESSURE MEDS [Concomitant]
  4. VALIUM [Concomitant]

REACTIONS (1)
  - UNEVALUABLE EVENT [None]
